FAERS Safety Report 6381265-6 (Version None)
Quarter: 2009Q3

REPORT INFORMATION
  Report Type: 
  Country: None (occurrence: None)
  Receive Date: 20090929
  Receipt Date: 20090916
  Transmission Date: 20100115
  Serious: Yes (Death)
  Sender: FDA-Public Use
  Company Number: JP-PFIZER INC-2009274332

PATIENT
  Age: 68 Year

DRUGS (3)
  1. CAMPTOSAR [Suspect]
     Indication: COLON CANCER
     Dosage: 80 MG/M2 (140 MG)
     Route: 041
     Dates: start: 20090519, end: 20090904
  2. AVASTIN [Suspect]
     Indication: COLON CANCER
     Dosage: 515 MG
     Route: 041
     Dates: start: 20090519, end: 20090904
  3. TS-1 [Suspect]
     Indication: COLON CANCER
     Dosage: 50 MG, 2X/DAY (100 MG)
     Route: 048
     Dates: start: 20090519, end: 20090909

REACTIONS (1)
  - FEBRILE NEUTROPENIA [None]
